FAERS Safety Report 18960774 (Version 10)
Quarter: 2022Q1

REPORT INFORMATION
  Report Type: Report from Study
  Country: US (occurrence: US)
  Receive Date: 20210302
  Receipt Date: 20220319
  Transmission Date: 20220423
  Serious: Yes (Hospitalization)
  Sender: FDA-Public Use
  Company Number: US-NOVARTISPH-NVSC2021US048176

PATIENT
  Age: 87 Year
  Sex: Female

DRUGS (1)
  1. ENTRESTO [Suspect]
     Active Substance: SACUBITRIL\VALSARTAN
     Indication: Cardiac failure
     Dosage: 100 MG, BID (49/51 MG)
     Route: 048

REACTIONS (6)
  - Blood glucose decreased [Unknown]
  - Blood glucose increased [Unknown]
  - Gait disturbance [Unknown]
  - Hypotension [Unknown]
  - Ejection fraction decreased [Unknown]
  - Diarrhoea [Unknown]

NARRATIVE: CASE EVENT DATE: 20210523
